FAERS Safety Report 8423666-8 (Version None)
Quarter: 2012Q2

REPORT INFORMATION
  Report Type: 
  Country: None (occurrence: None)
  Receive Date: 20120608
  Receipt Date: 20120606
  Transmission Date: 20120825
  Serious: Yes (Other)
  Sender: FDA-Public Use
  Company Number: PHHY2012SK035822

PATIENT
  Age: 55 Year
  Sex: Female

DRUGS (2)
  1. XANAX [Concomitant]
     Indication: PSYCHIATRIC DECOMPENSATION
  2. CITALOPRAM HYDROBROMIDE [Suspect]
     Indication: PSYCHIATRIC DECOMPENSATION

REACTIONS (8)
  - OEDEMA PERIPHERAL [None]
  - CYSTOID MACULAR OEDEMA [None]
  - VISUAL ACUITY REDUCED [None]
  - FATIGUE [None]
  - HYPOAESTHESIA ORAL [None]
  - HYALOSIS ASTEROID [None]
  - VITREOUS FLOATERS [None]
  - BLINDNESS UNILATERAL [None]
